FAERS Safety Report 9306636 (Version 2)
Quarter: 2013Q2

REPORT INFORMATION
  Report Type: Spontaneous
  Country: US (occurrence: US)
  Receive Date: 20130523
  Receipt Date: 20130523
  Transmission Date: 20140414
  Serious: Yes (Other)
  Sender: FDA-Public Use
  Company Number: US-NAPPMUNDI-USA-2011-0068369

PATIENT
  Age: 49 Year
  Sex: Male

DRUGS (2)
  1. OXYCONTIN TABLETS [Suspect]
     Indication: PAIN
     Dosage: 1125 MG, SEE TEXT
  2. SATIVEX [Suspect]
     Indication: DRUG DETOXIFICATION
     Dosage: UNKNOWN

REACTIONS (3)
  - Substance use [Recovering/Resolving]
  - Tooth loss [Unknown]
  - Inadequate analgesia [Unknown]
